FAERS Safety Report 11422135 (Version 1)
Quarter: 2015Q3

REPORT INFORMATION
  Report Type: Spontaneous
  Country: BR (occurrence: None)
  Receive Date: 20150825
  Receipt Date: 20150825
  Transmission Date: 20151125
  Serious: Yes (Life-Threatening)
  Sender: FDA-Public Use
  Company Number: BR-TORRENT-00003058

PATIENT
  Age: 56 Year
  Sex: Female

DRUGS (9)
  1. LUGOL [Concomitant]
     Active Substance: IODINE\POTASSIUM IODIDE
  2. PURAN [Concomitant]
     Active Substance: LEVOTHYROXINE SODIUM
  3. FLUOXETINE [Concomitant]
     Active Substance: FLUOXETINE\FLUOXETINE HYDROCHLORIDE
  4. LINOLENIC ACID [Concomitant]
     Active Substance: LINOLENIC ACID
  5. TORVAL CR [Suspect]
     Active Substance: VALPROATE SODIUM
     Indication: BIPOLAR DISORDER
     Route: 048
     Dates: start: 2014
  6. VENLIFT OD (INN:VENLAFAXINE HYDROCHLORIDE) [Suspect]
     Active Substance: VENLAFAXINE HYDROCHLORIDE
     Indication: DEPRESSION
     Route: 048
     Dates: start: 2014
  7. PROGESTERONE. [Concomitant]
     Active Substance: PROGESTERONE
  8. KERATIN [Concomitant]
     Active Substance: KERATIN
  9. LAMITOR (INN:LAMOTRIGINE) [Suspect]
     Active Substance: LAMOTRIGINE
     Indication: PRODUCT USED FOR UNKNOWN INDICATION
     Route: 048
     Dates: start: 2013, end: 2013

REACTIONS (9)
  - Alopecia [None]
  - Depression [None]
  - Therapy cessation [None]
  - Insomnia [None]
  - Off label use [None]
  - Suicidal ideation [None]
  - Hair disorder [None]
  - Economic problem [None]
  - Somnolence [None]

NARRATIVE: CASE EVENT DATE: 201506
